FAERS Safety Report 10896088 (Version 2)
Quarter: 2015Q1

REPORT INFORMATION
  Report Type: Spontaneous
  Country: US (occurrence: US)
  Receive Date: 20150309
  Receipt Date: 20150330
  Transmission Date: 20150721
  Serious: Yes (Other)
  Sender: FDA-Public Use
  Company Number: US-ROCHE-1548956

PATIENT
  Age: 61 Year
  Sex: Female

DRUGS (4)
  1. PREDNISOLONE. [Concomitant]
     Active Substance: PREDNISOLONE
  2. XOLAIR [Suspect]
     Active Substance: OMALIZUMAB
     Indication: ASTHMA
     Dosage: QMO
     Route: 058
  3. EPHYRA [Concomitant]
     Route: 065
  4. SYMBICORT [Concomitant]
     Active Substance: BUDESONIDE\FORMOTEROL FUMARATE DIHYDRATE
     Dosage: 160/45 OT
     Route: 065

REACTIONS (5)
  - Spirometry abnormal [Unknown]
  - Drug ineffective [Unknown]
  - Dyspnoea [Unknown]
  - Obstruction [Unknown]
  - Wheezing [Unknown]
